FAERS Safety Report 20478400 (Version 1)
Quarter: 2022Q1

REPORT INFORMATION
  Report Type: Spontaneous
  Country: TR (occurrence: TR)
  Receive Date: 20220216
  Receipt Date: 20220216
  Transmission Date: 20220424
  Serious: Yes (Other)
  Sender: FDA-Public Use
  Company Number: TR-SUN PHARMACEUTICAL INDUSTRIES LTD-2022RR-326684

PATIENT
  Age: 58 Year
  Sex: Female

DRUGS (7)
  1. LITHIUM [Suspect]
     Active Substance: LITHIUM
     Indication: Mania
     Dosage: 900 MILLIGRAM, DAILY
     Route: 065
  2. QUETIAPINE [Suspect]
     Active Substance: QUETIAPINE
     Indication: Mania
     Dosage: 100 MILLIGRAM, DAILY
     Route: 048
  3. HALOPERIDOL [Suspect]
     Active Substance: HALOPERIDOL
     Indication: Mania
     Dosage: 20 MILLIGRAM, DAILY
     Route: 065
  4. HALOPERIDOL [Suspect]
     Active Substance: HALOPERIDOL
     Dosage: 15 MILLIGRAM, DAILY
     Route: 065
  5. CLONAZEPAM [Suspect]
     Active Substance: CLONAZEPAM
     Indication: Mania
     Dosage: 1 MILLIGRAM, DAILY
     Route: 065
  6. BIPERIDEN [Suspect]
     Active Substance: BIPERIDEN
     Indication: Mania
     Dosage: 4 MILLIGRAM, DAILY
     Route: 065
  7. BIPERIDEN [Suspect]
     Active Substance: BIPERIDEN
     Dosage: 3 MILLIGRAM, DAILY
     Route: 065

REACTIONS (4)
  - Therapeutic product effect incomplete [Unknown]
  - Decreased appetite [Unknown]
  - Dyskinesia [Unknown]
  - Drug ineffective [Unknown]
